FAERS Safety Report 14784096 (Version 2)
Quarter: 2018Q2

REPORT INFORMATION
  Report Type: Spontaneous
  Country: US (occurrence: US)
  Receive Date: 20180420
  Receipt Date: 20180420
  Transmission Date: 20180711
  Serious: Yes (Other)
  Sender: FDA-Public Use
  Company Number: US-GLAXOSMITHKLINE-US2018064719

PATIENT
  Age: 26 Year
  Sex: Male

DRUGS (3)
  1. ASPIRIN + CAFFEINE + SALICYLAMIDE [Suspect]
     Active Substance: ASPIRIN\CAFFEINE\SALICYLAMIDE
     Indication: PRODUCT USED FOR UNKNOWN INDICATION
     Dosage: UNK
  2. EXCEDRIN [Suspect]
     Active Substance: ACETAMINOPHEN\ASPIRIN\CAFFEINE
     Indication: PRODUCT USED FOR UNKNOWN INDICATION
     Dosage: UNK
  3. EXCEDRIN TENSION HEADACHE [Suspect]
     Active Substance: ACETAMINOPHEN\CAFFEINE
     Indication: HEADACHE
     Dosage: 2 DF, UNK

REACTIONS (5)
  - Blood pressure increased [Unknown]
  - Myocardial infarction [Unknown]
  - Emergency care examination [Unknown]
  - Contraindicated product administered [Unknown]
  - Drug hypersensitivity [Unknown]
